FAERS Safety Report 8340423-1 (Version None)
Quarter: 2012Q2

REPORT INFORMATION
  Report Type: 
  Country: None (occurrence: None)
  Receive Date: 20120507
  Receipt Date: 20120507
  Transmission Date: 20120825
  Serious: Yes (Other)
  Sender: FDA-Public Use
  Company Number: None

PATIENT
  Age: 45 Year
  Sex: Female
  Weight: 54.431 kg

DRUGS (1)
  1. CIPROFLOXACIN [Suspect]
     Indication: URINARY TRACT INFECTION
     Dosage: |DOSAGETEXT: 1 TABLET||STRENGTH: 500 MG||FREQ: PER DAY||ROUTE: ORAL|
     Route: 048
     Dates: start: 20120322, end: 20120323

REACTIONS (4)
  - MYALGIA [None]
  - ARTHRALGIA [None]
  - MUSCULAR WEAKNESS [None]
  - HYPOAESTHESIA [None]
